FAERS Safety Report 16833416 (Version 1)
Quarter: 2019Q3

REPORT INFORMATION
  Report Type: Spontaneous
  Country: US (occurrence: US)
  Receive Date: 20190731
  Receipt Date: 20190731
  Transmission Date: 20191005
  Serious: Yes (Hospitalization)
  Sender: FDA-Public Use
  Company Number: None

PATIENT
  Sex: Male

DRUGS (2)
  1. EPINEPHRINE. [Suspect]
     Active Substance: EPINEPHRINE
     Dosage: ?          OTHER DOSE:PREFIL SYRINGE;OTHER ROUTE:INJECTABLE?
  2. CALCIUM CHLORIDE. [Suspect]
     Active Substance: CALCIUM CHLORIDE
     Dosage: ?          OTHER STRENGTH:1G/10ML;OTHER DOSE:LUERJET PREFIL SYR;OTHER ROUTE:INJECTABLE?

REACTIONS (4)
  - Wrong product administered [None]
  - Hypertension [None]
  - Product appearance confusion [None]
  - Cerebral haemorrhage [None]
